FAERS Safety Report 7294846-2 (Version None)
Quarter: 2011Q1

REPORT INFORMATION
  Report Type: 
  Country: None (occurrence: None)
  Receive Date: 20110216
  Receipt Date: 20110208
  Transmission Date: 20110831
  Serious: Yes (Other)
  Sender: FDA-Public Use
  Company Number: US-ABBOTT-11P-163-0703545-00

PATIENT
  Sex: Male

DRUGS (1)
  1. HUMIRA [Suspect]
     Indication: ANKYLOSING SPONDYLITIS
     Route: 058
     Dates: start: 20090330

REACTIONS (6)
  - PRURITUS [None]
  - SKIN DISCOLOURATION [None]
  - DRY SKIN [None]
  - DERMAL CYST [None]
  - NODULE [None]
  - TENDERNESS [None]
